FAERS Safety Report 15267665 (Version 3)
Quarter: 2018Q4

REPORT INFORMATION
  Report Type: Report from Study
  Country: US (occurrence: US)
  Receive Date: 20180811
  Receipt Date: 20181221
  Transmission Date: 20190204
  Serious: No
  Sender: FDA-Public Use
  Company Number: PHEH2018US033043

PATIENT
  Sex: Female

DRUGS (2)
  1. COSENTYX [Suspect]
     Active Substance: SECUKINUMAB
     Indication: PSORIASIS
     Dosage: 300 MG, EVERY 28 DAYS
     Route: 058
     Dates: start: 20180717
  2. COSENTYX [Suspect]
     Active Substance: SECUKINUMAB
     Indication: PSORIATIC ARTHROPATHY
     Dosage: 300 MG, QMO
     Route: 058

REACTIONS (6)
  - Chest pain [Unknown]
  - Gastrooesophageal reflux disease [Unknown]
  - Productive cough [Unknown]
  - Respiratory tract congestion [Unknown]
  - Drug effect incomplete [Unknown]
  - Arthralgia [Unknown]
